FAERS Safety Report 4484146-8 (Version None)
Quarter: 2004Q4

REPORT INFORMATION
  Report Type: 
  Country: None (occurrence: None)
  Receive Date: 20041021
  Receipt Date: 20041006
  Transmission Date: 20050328
  Serious: Yes (Death)
  Sender: FDA-Public Use
  Company Number: 2004AL000911

PATIENT
  Age: 21 Year

DRUGS (1)
  1. PHENYLEPHRINE HCL NASAL SOLUTION 1% (ALPHARMA) [Suspect]
     Dosage: PO
     Route: 048

REACTIONS (4)
  - CARDIAC ARREST [None]
  - MEDICATION ERROR [None]
  - OVERDOSE [None]
  - RESPIRATORY ARREST [None]
